FAERS Safety Report 9696281 (Version 1)
Quarter: 2013Q4

REPORT INFORMATION
  Report Type: Spontaneous
  Country: KR (occurrence: None)
  Receive Date: 20131115
  Receipt Date: 20131115
  Transmission Date: 20140711
  Serious: Yes (Other)
  Sender: FDA-Public Use
  Company Number: SYM-2013-12487

PATIENT
  Sex: 0

DRUGS (4)
  1. FLUOROURACIL [Suspect]
     Indication: GASTRIC CANCER
  2. IRINOTECAN [Concomitant]
  3. LEUCOVORIN (FOLINIC ACID) (FOLINIC ACID) [Concomitant]
  4. ANTIEMETICS AND ANTINAUSEANTS [Concomitant]

REACTIONS (1)
  - Toxic encephalopathy [None]
